FAERS Safety Report 8102586 (Version 4)
Quarter: 2013Q3

REPORT INFORMATION
  Report Type: Spontaneous
  Country: US (occurrence: US)
  Receive Date: 20110823
  Receipt Date: 20130828
  Transmission Date: 20140515
  Serious: Yes (Hospitalization)
  Sender: FDA-Public Use
  Company Number: US-GLAXOSMITHKLINE-A0915694A

PATIENT
  Age: 58 Year
  Sex: Male

DRUGS (1)
  1. AVANDIA [Suspect]
     Indication: DIABETES MELLITUS
     Dosage: 8MG PER DAY
     Route: 048
     Dates: start: 200411, end: 200801

REACTIONS (5)
  - Coronary artery disease [Unknown]
  - Coronary artery bypass [Unknown]
  - Asthenia [Unknown]
  - Cardiomegaly [Unknown]
  - Myocardial infarction [Unknown]
